FAERS Safety Report 10218756 (Version 1)
Quarter: 2014Q2

REPORT INFORMATION
  Report Type: Spontaneous
  Country: FR (occurrence: FR)
  Receive Date: 20140605
  Receipt Date: 20140605
  Transmission Date: 20141212
  Serious: Yes (Hospitalization)
  Sender: FDA-Public Use
  Company Number: FR-SA-2014SA069304

PATIENT
  Age: 78 Year
  Sex: Male

DRUGS (10)
  1. LOVENOX [Suspect]
     Indication: PRODUCT USED FOR UNKNOWN INDICATION
     Route: 058
     Dates: start: 20140125, end: 20140127
  2. VISIPAQUE [Suspect]
     Dosage: DOSE:1 UNIT(S)
     Route: 042
     Dates: start: 20140124, end: 20140124
  3. MORPHINE [Suspect]
     Indication: PRODUCT USED FOR UNKNOWN INDICATION
     Dosage: FREQUENCY:AS NEEDED DOSE:10 MILLIGRAM(S)/MILLILITRE
     Route: 058
     Dates: start: 20140125, end: 20140127
  4. SPASFON [Suspect]
     Indication: PRODUCT USED FOR UNKNOWN INDICATION
     Dosage: DOSE:1 INJECTION
     Route: 042
     Dates: start: 20140125, end: 20140127
  5. DEBRIDAT [Suspect]
     Indication: PRODUCT USED FOR UNKNOWN INDICATION
     Route: 042
     Dates: start: 20140125, end: 20140127
  6. INEXIUM [Concomitant]
     Dates: start: 20140125, end: 20140125
  7. PARACETAMOL [Concomitant]
     Route: 042
     Dates: start: 20140125, end: 20140127
  8. TRANSIPEG [Concomitant]
     Route: 042
     Dates: start: 20140125, end: 20140127
  9. BISOPROLOL HEMIFUMARATE [Concomitant]
     Route: 048
  10. GLUCIDION [Concomitant]
     Route: 042
     Dates: start: 20140125, end: 20140127

REACTIONS (1)
  - Renal failure acute [Recovering/Resolving]
